FAERS Safety Report 22650376 (Version 1)
Quarter: 2023Q2

REPORT INFORMATION
  Report Type: Spontaneous
  Country: US (occurrence: US)
  Receive Date: 20230628
  Receipt Date: 20230628
  Transmission Date: 20230722
  Serious: No
  Sender: FDA-Public Use
  Company Number: US-MAYNE PHARMA-2023TMD00258

PATIENT
  Age: 60 Year
  Sex: Female
  Weight: 74.376 kg

DRUGS (5)
  1. IMVEXXY [Suspect]
     Active Substance: ESTRADIOL
     Indication: Blood oestrogen decreased
     Dosage: 10 ?G, 1X/DAY
     Route: 067
     Dates: start: 20230515
  2. IMVEXXY [Suspect]
     Active Substance: ESTRADIOL
     Indication: Urinary tract infection
  3. IMVEXXY [Suspect]
     Active Substance: ESTRADIOL
     Indication: Pelvic discomfort
  4. IMVEXXY [Suspect]
     Active Substance: ESTRADIOL
     Indication: Atrophic vulvovaginitis
  5. IMVEXXY [Suspect]
     Active Substance: ESTRADIOL
     Indication: Pollakiuria

REACTIONS (1)
  - Vulvovaginal discomfort [Recovered/Resolved]

NARRATIVE: CASE EVENT DATE: 20230516
